FAERS Safety Report 8967708 (Version 1)
Quarter: 2012Q4

REPORT INFORMATION
  Report Type: Spontaneous
  Country: US (occurrence: None)
  Receive Date: 20121213
  Receipt Date: 20121213
  Transmission Date: 20130627
  Serious: Yes (Hospitalization, Other)
  Sender: FDA-Public Use
  Company Number: None

PATIENT
  Age: 43 Year
  Sex: Female

DRUGS (1)
  1. LISINOPRIL [Suspect]
     Dosage: 2.5 MG PO DAILY
     Route: 048
     Dates: start: 20120101, end: 20120815

REACTIONS (3)
  - Lip swelling [None]
  - Swelling face [None]
  - Chest discomfort [None]
